FAERS Safety Report 10197508 (Version 1)
Quarter: 2014Q2

REPORT INFORMATION
  Report Type: Spontaneous
  Country: US (occurrence: US)
  Receive Date: 20140527
  Receipt Date: 20140527
  Transmission Date: 20141212
  Serious: No
  Sender: FDA-Public Use
  Company Number: US-NOVEN-14US008897

PATIENT
  Age: 60 Year
  Sex: Female

DRUGS (1)
  1. MINIVELLE [Suspect]
     Indication: HOT FLUSH
     Dosage: 0.05MG/DAY, 2/WK
     Route: 062
     Dates: start: 201310

REACTIONS (2)
  - Skin odour abnormal [Not Recovered/Not Resolved]
  - Metrorrhagia [Not Recovered/Not Resolved]
